FAERS Safety Report 7762315-9 (Version None)
Quarter: 2011Q3

REPORT INFORMATION
  Report Type: 
  Country: None (occurrence: None)
  Receive Date: 20110920
  Receipt Date: 20110906
  Transmission Date: 20111222
  Serious: Yes (Other)
  Sender: FDA-Public Use
  Company Number: FR-NOVOPROD-334601

PATIENT

DRUGS (7)
  1. PANTOPRAZOLE SODIUM [Concomitant]
  2. VICTOZA [Suspect]
     Indication: TYPE 2 DIABETES MELLITUS
     Dosage: SC
     Route: 058
     Dates: start: 20101001, end: 20110126
  3. CORGARD [Concomitant]
  4. BEFIZAL [Concomitant]
  5. METFORMIN HCL [Concomitant]
  6. PROVAMES [Concomitant]
  7. ANDROCUR [Concomitant]

REACTIONS (3)
  - ASTHENIA [None]
  - BLOOD PRESSURE INCREASED [None]
  - TACHYCARDIA [None]
